FAERS Safety Report 4621729-6 (Version None)
Quarter: 2005Q1

REPORT INFORMATION
  Report Type: 
  Country: None (occurrence: None)
  Receive Date: 20050329
  Receipt Date: 20050318
  Transmission Date: 20050727
  Serious: Yes (Other)
  Sender: FDA-Public Use
  Company Number: TN-JNJFOC-20050201401

PATIENT
  Sex: Male
  Weight: 35 kg

DRUGS (1)
  1. PROPULSID [Suspect]
     Route: 049

REACTIONS (6)
  - ANGINA PECTORIS [None]
  - ASTHENIA [None]
  - CHEST DISCOMFORT [None]
  - FATIGUE [None]
  - PALLOR [None]
  - PALPITATIONS [None]
